FAERS Safety Report 13968842 (Version 1)
Quarter: 2017Q3

REPORT INFORMATION
  Report Type: Spontaneous
  Country: US (occurrence: US)
  Receive Date: 20170914
  Receipt Date: 20170914
  Transmission Date: 20171128
  Serious: No
  Sender: FDA-Public Use
  Company Number: US-ASTELLAS-2016US037727

PATIENT
  Age: 72 Year
  Sex: Male

DRUGS (1)
  1. XTANDI [Suspect]
     Active Substance: ENZALUTAMIDE
     Indication: PROSTATE CANCER
     Route: 048
     Dates: start: 20160528, end: 20160907

REACTIONS (19)
  - Prostatic specific antigen increased [Unknown]
  - Pruritus [Unknown]
  - Hypertension [Unknown]
  - Insomnia [Recovering/Resolving]
  - Cough [Unknown]
  - Nasal congestion [Unknown]
  - Dysgeusia [Unknown]
  - Dyspnoea [Unknown]
  - Fatigue [Recovering/Resolving]
  - Back pain [Recovering/Resolving]
  - Urticaria [Unknown]
  - Blood urine present [Unknown]
  - Decreased appetite [Unknown]
  - Constipation [Recovered/Resolved]
  - Weight decreased [Unknown]
  - Hot flush [Recovered/Resolved]
  - Diarrhoea [Unknown]
  - Rash [Unknown]
  - Swelling [Unknown]

NARRATIVE: CASE EVENT DATE: 20160528
